FAERS Safety Report 4814944-X (Version None)
Quarter: 2005Q4

REPORT INFORMATION
  Report Type: 
  Country: None (occurrence: None)
  Receive Date: 20051028
  Receipt Date: 20051019
  Transmission Date: 20060501
  Serious: Yes (Hospitalization, Other)
  Sender: FDA-Public Use
  Company Number: PHHO2005JP16672

PATIENT
  Age: 78 Year
  Sex: Female

DRUGS (6)
  1. DIOVAN [Suspect]
     Indication: HYPERTENSION
     Dosage: 40 MG, QD
     Route: 048
     Dates: start: 20030729
  2. MAINTATE [Concomitant]
     Indication: HYPERTROPHIC CARDIOMYOPATHY
     Dosage: UNK, UNK
     Dates: start: 19970729
  3. MEDET [Concomitant]
     Indication: DIABETES MELLITUS
     Dosage: UNK, UNK
     Dates: start: 20011002
  4. EPADEL [Concomitant]
     Indication: HYPERCHOLESTEROLAEMIA
     Dosage: UNK, UNK
     Dates: start: 20011002
  5. VERAPAMIL [Concomitant]
     Indication: CARDIOMYOPATHY
     Dosage: UNK, UNK
     Dates: start: 20041207
  6. LIVALO KOWA [Concomitant]
     Indication: HYPERCHOLESTEROLAEMIA
     Dosage: UNK, UNK
     Dates: start: 20041012

REACTIONS (1)
  - FACIAL PALSY [None]
